FAERS Safety Report 7159612 (Version 4)
Quarter: 2016Q3

REPORT INFORMATION
  Report Type: Spontaneous
  Country: US (occurrence: US)
  Receive Date: 20091027
  Receipt Date: 20160928
  Transmission Date: 20161109
  Serious: Yes (Hospitalization, Disabling, Other)
  Sender: FDA-Public Use
  Company Number: US-ELI_LILLY_AND_COMPANY-US200910003580

PATIENT
  Sex: Male

DRUGS (3)
  1. LITHIUM. [Concomitant]
     Active Substance: LITHIUM
     Dosage: UNK
  2. PROZAC [Suspect]
     Active Substance: FLUOXETINE HYDROCHLORIDE
     Indication: DEPRESSION
     Dosage: 20 MG, DAILY (1/D)
     Route: 065
     Dates: start: 199101, end: 199105
  3. KLONOPIN [Concomitant]
     Active Substance: CLONAZEPAM
     Dosage: 0.5 MG, UNK

REACTIONS (28)
  - Anger [Not Recovered/Not Resolved]
  - Mania [Not Recovered/Not Resolved]
  - Abnormal behaviour [Recovered/Resolved]
  - Tardive dyskinesia [Not Recovered/Not Resolved]
  - Cerebral lobotomy [Unknown]
  - Deformity [Unknown]
  - Dyspnoea [Unknown]
  - Homicidal ideation [Recovered/Resolved]
  - Eye disorder [Recovered/Resolved]
  - Amnesia [Recovered/Resolved]
  - Post-traumatic stress disorder [Not Recovered/Not Resolved]
  - Personality change [Not Recovered/Not Resolved]
  - Muscle twitching [Not Recovered/Not Resolved]
  - Developmental delay [Not Recovered/Not Resolved]
  - Balance disorder [Unknown]
  - Hospitalisation [Unknown]
  - Coma [Unknown]
  - Endocrine disorder [Unknown]
  - Bipolar disorder [Unknown]
  - Head injury [Recovered/Resolved]
  - Suicidal ideation [Not Recovered/Not Resolved]
  - Brain injury [Not Recovered/Not Resolved]
  - Physical assault [Unknown]
  - Jaw disorder [Unknown]
  - Disability [Not Recovered/Not Resolved]
  - Growth retardation [Not Recovered/Not Resolved]
  - Aggression [Recovered/Resolved]
  - Thermal burn [Unknown]

NARRATIVE: CASE EVENT DATE: 1991
